FAERS Safety Report 8230688-9 (Version None)
Quarter: 2012Q1

REPORT INFORMATION
  Report Type: 
  Country: None (occurrence: None)
  Receive Date: 20120323
  Receipt Date: 20120319
  Transmission Date: 20120608
  Serious: Yes (Other)
  Sender: FDA-Public Use
  Company Number: US-BAYER-2012-027634

PATIENT
  Age: 59 Year
  Sex: Female
  Weight: 61.678 kg

DRUGS (4)
  1. HYDROCHLOROTHIAZIDE [Concomitant]
  2. ASPIRIN [Suspect]
  3. LISINOPRIL [Concomitant]
  4. CITRACAL PETITES [Suspect]
     Dosage: 1 DF, ONCE, BOTTLE COUNT 200S
     Route: 048
     Dates: start: 20120317

REACTIONS (1)
  - VAGINAL HAEMORRHAGE [None]
